FAERS Safety Report 8383426-3 (Version None)
Quarter: 2012Q2

REPORT INFORMATION
  Report Type: 
  Country: None (occurrence: None)
  Receive Date: 20120524
  Receipt Date: 20120523
  Transmission Date: 20120825
  Serious: Yes (Hospitalization)
  Sender: FDA-Public Use
  Company Number: US-PFIZER INC-2012125310

PATIENT
  Sex: Female
  Weight: 72.5 kg

DRUGS (1)
  1. ARTHROTEC [Suspect]
     Indication: ARTHRITIS
     Dosage: 200 MCG+75MG  2XDAY 5DAYS IN A WEEK
     Route: 048
     Dates: end: 20120406

REACTIONS (5)
  - VOMITING [None]
  - ULCER HAEMORRHAGE [None]
  - MALAISE [None]
  - WEIGHT DECREASED [None]
  - NAUSEA [None]
